FAERS Safety Report 9024405 (Version 1)
Quarter: 2013Q1

REPORT INFORMATION
  Report Type: Spontaneous
  Country: US (occurrence: US)
  Receive Date: 20130121
  Receipt Date: 20130121
  Transmission Date: 20140127
  Serious: No
  Sender: FDA-Public Use
  Company Number: US-BAYER-2013-002676

PATIENT
  Age: 54 Year
  Sex: Female
  Weight: 58.96 kg

DRUGS (4)
  1. BETASERON [Suspect]
     Dosage: 0.25 MG, QOD
     Route: 058
  2. MACROBID [Concomitant]
     Route: 048
  3. VITAMIN D [Concomitant]
     Route: 048
  4. ASPIRIN BUFFERED [Concomitant]
     Route: 048

REACTIONS (2)
  - Influenza like illness [Unknown]
  - Injection site reaction [Unknown]
